FAERS Safety Report 12634590 (Version 1)
Quarter: 2016Q3

REPORT INFORMATION
  Report Type: Spontaneous
  Country: US (occurrence: None)
  Receive Date: 20160808
  Receipt Date: 20160808
  Transmission Date: 20161109
  Serious: No
  Sender: FDA-Public Use
  Company Number: None

PATIENT
  Age: 18 Year
  Sex: Female
  Weight: 100 kg

DRUGS (2)
  1. CLINDAMYCIN [Suspect]
     Active Substance: CLINDAMYCIN\CLINDAMYCIN PHOSPHATE
     Indication: MUSCULOSKELETAL CHEST PAIN
     Route: 048
     Dates: start: 20160807
  2. TORADOL [Suspect]
     Active Substance: KETOROLAC TROMETHAMINE
     Indication: MUSCULOSKELETAL CHEST PAIN
     Route: 048
     Dates: start: 20160807

REACTIONS (1)
  - Lip swelling [None]

NARRATIVE: CASE EVENT DATE: 20160807
